FAERS Safety Report 19787857 (Version 2)
Quarter: 2022Q2

REPORT INFORMATION
  Report Type: Spontaneous
  Country: US (occurrence: None)
  Receive Date: 20210903
  Receipt Date: 20220405
  Transmission Date: 20220721
  Serious: Yes (Disabling, Other)
  Sender: FDA-Public Use
  Company Number: 2021A705397

PATIENT
  Age: 569 Month
  Sex: Female
  Weight: 79.8 kg

DRUGS (39)
  1. NEXIUM [Suspect]
     Active Substance: ESOMEPRAZOLE MAGNESIUM
     Indication: Gastrooesophageal reflux disease
     Dosage: FOR VARIOUS DATES AND YEARS
     Route: 048
  2. NEXIUM [Suspect]
     Active Substance: ESOMEPRAZOLE MAGNESIUM
     Indication: Gastrooesophageal reflux disease
     Route: 048
     Dates: start: 199911, end: 200212
  3. NEXIUM [Suspect]
     Active Substance: ESOMEPRAZOLE MAGNESIUM
     Indication: Gastrooesophageal reflux disease
     Route: 048
     Dates: start: 201112
  4. NEXIUM [Suspect]
     Active Substance: ESOMEPRAZOLE MAGNESIUM
     Indication: Gastrooesophageal reflux disease
     Dosage: GENERIC
     Route: 065
     Dates: start: 200301, end: 201903
  5. OMEPRAZOLE [Suspect]
     Active Substance: OMEPRAZOLE
     Indication: Gastrooesophageal reflux disease
     Dosage: GENERIC
     Route: 065
     Dates: start: 201912, end: 202104
  6. PROTONIX [Suspect]
     Active Substance: PANTOPRAZOLE SODIUM
     Indication: Gastrooesophageal reflux disease
     Route: 065
     Dates: start: 202108, end: 202110
  7. PROTONIX [Suspect]
     Active Substance: PANTOPRAZOLE SODIUM
     Indication: Gastrooesophageal reflux disease
     Dosage: GENERIC40.0MG CONTINUOUSLY
     Route: 065
     Dates: start: 201705
  8. ALBUTEROL [Concomitant]
     Active Substance: ALBUTEROL
     Indication: Asthma
     Dates: start: 2018
  9. ALBUTEROL [Concomitant]
     Active Substance: ALBUTEROL
     Indication: Vocal cord dysfunction
     Dates: start: 2018
  10. FLUOXETINE [Concomitant]
     Active Substance: FLUOXETINE HYDROCHLORIDE
     Indication: Major depression
     Dates: start: 2011
  11. FLUOXETINE [Concomitant]
     Active Substance: FLUOXETINE HYDROCHLORIDE
     Indication: Anxiety
     Dates: start: 2011
  12. GABAPENTIN [Concomitant]
     Active Substance: GABAPENTIN
     Indication: Spinal instability
     Dates: start: 202111
  13. GABAPENTIN [Concomitant]
     Active Substance: GABAPENTIN
     Indication: Radiculopathy
     Dates: start: 202111
  14. CYCLOBENZAPRINE [Concomitant]
     Active Substance: CYCLOBENZAPRINE
     Indication: Muscle spasms
     Dates: start: 202108
  15. ELETRIPTAN [Concomitant]
     Active Substance: ELETRIPTAN
     Indication: Migraine
     Dates: start: 200708
  16. ELETRIPTAN [Concomitant]
     Active Substance: ELETRIPTAN
     Indication: Headache
     Dates: start: 200708
  17. KETOTIFEN [Concomitant]
     Active Substance: KETOTIFEN
     Indication: Eye pruritus
     Dates: start: 201809
  18. KETOTIFEN [Concomitant]
     Active Substance: KETOTIFEN
     Indication: Discomfort
     Dates: start: 201809
  19. VITAMIN D2 [Concomitant]
     Active Substance: ERGOCALCIFEROL
     Indication: Vitamin D deficiency
     Dates: start: 201703
  20. MONTELUKAST [Concomitant]
     Active Substance: MONTELUKAST SODIUM
     Indication: Vitamin D deficiency
     Dates: start: 201901
  21. CARVEDILOL [Concomitant]
     Active Substance: CARVEDILOL
     Indication: Blood pressure diastolic increased
     Dates: start: 201707
  22. VITAMINS [Concomitant]
     Active Substance: VITAMINS
     Indication: Product communication issue
     Dates: start: 202001
  23. RANITIDINE [Concomitant]
     Active Substance: RANITIDINE
     Dates: start: 201811, end: 201905
  24. PAROXETINE [Concomitant]
     Active Substance: PAROXETINE
  25. WELLBUTRIN [Concomitant]
     Active Substance: BUPROPION HYDROCHLORIDE
  26. ZYRTEC [Concomitant]
     Active Substance: CETIRIZINE HYDROCHLORIDE
  27. TRAMADOL [Concomitant]
     Active Substance: TRAMADOL
  28. MOTRIN [Concomitant]
     Active Substance: IBUPROFEN
  29. HYDROCODONE BITARTRATE AND ACETAMINOPHEN [Concomitant]
     Active Substance: ACETAMINOPHEN\HYDROCODONE BITARTRATE
  30. MELOXICAM [Concomitant]
     Active Substance: MELOXICAM
  31. ONDANSETRON [Concomitant]
     Active Substance: ONDANSETRON
  32. TRAZODONE [Concomitant]
     Active Substance: TRAZODONE HYDROCHLORIDE
  33. ETODOLAC [Concomitant]
     Active Substance: ETODOLAC
  34. NASONEX [Concomitant]
     Active Substance: MOMETASONE FUROATE
     Dates: start: 20131018
  35. NASONEX [Concomitant]
     Active Substance: MOMETASONE FUROATE
     Dates: start: 20131018
  36. INDOMETHACIN [Concomitant]
     Active Substance: INDOMETHACIN
     Dates: start: 20131030
  37. TEMAZEPAM [Concomitant]
     Active Substance: TEMAZEPAM
     Dates: start: 20131127
  38. TIZANIDINE [Concomitant]
     Active Substance: TIZANIDINE
     Dates: start: 20141030
  39. ZANAFLEX [Concomitant]
     Active Substance: TIZANIDINE HYDROCHLORIDE
     Dates: start: 20131029

REACTIONS (4)
  - Chronic kidney disease [Not Recovered/Not Resolved]
  - Renal failure [Unknown]
  - Major depression [Unknown]
  - Rebound acid hypersecretion [Unknown]

NARRATIVE: CASE EVENT DATE: 20161001
